FAERS Safety Report 6401507-8 (Version None)
Quarter: 2009Q4

REPORT INFORMATION
  Report Type: 
  Country: None (occurrence: None)
  Receive Date: 20091015
  Receipt Date: 20090930
  Transmission Date: 20100525
  Serious: Yes (Life-Threatening)
  Sender: FDA-Public Use
  Company Number: IT-GENENTECH-291793

PATIENT
  Sex: Female

DRUGS (3)
  1. AVASTIN [Suspect]
     Indication: BREAST CANCER
     Dosage: 600 MG, UNK
     Route: 042
     Dates: start: 20090701, end: 20090923
  2. KYTRIL [Suspect]
     Indication: VOMITING
     Dosage: 3 MG, UNK
     Route: 030
     Dates: start: 20090701, end: 20090923
  3. RANIDIL [Suspect]
     Indication: DRUG USE FOR UNKNOWN INDICATION
     Dosage: 500 MG, UNK
     Route: 042
     Dates: start: 20090701, end: 20090923

REACTIONS (3)
  - ANAPHYLACTIC SHOCK [None]
  - HYPOTENSION [None]
  - RASH [None]
